FAERS Safety Report 19849417 (Version 1)
Quarter: 2021Q3

REPORT INFORMATION
  Report Type: Report from Study
  Country: US (occurrence: US)
  Receive Date: 20210918
  Receipt Date: 20210918
  Transmission Date: 20211014
  Serious: Yes (Hospitalization)
  Sender: FDA-Public Use
  Company Number: US-TAKEDA-2021TUS056496

PATIENT
  Sex: Female
  Weight: 159 kg

DRUGS (35)
  1. ZOFRAN [Concomitant]
     Active Substance: ONDANSETRON HYDROCHLORIDE
  2. SYSTANE (HYPROMELLOSE 2910 (4000 MPA.S)) [Concomitant]
     Active Substance: HYPROMELLOSE 2910 (4000 MPA.S)
  3. PROBIOTIC 10 [Concomitant]
     Active Substance: DIETARY SUPPLEMENT\PROBIOTICS
  4. MULTIVITAMIN [Concomitant]
     Active Substance: VITAMINS
  5. ACETAMINOPHEN. [Concomitant]
     Active Substance: ACETAMINOPHEN
  6. DULOXETINE. [Concomitant]
     Active Substance: DULOXETINE
  7. OMEPRAZOLE. [Concomitant]
     Active Substance: OMEPRAZOLE
  8. TRIAMCINOLONE [Concomitant]
     Active Substance: TRIAMCINOLONE
  9. NORCO [Concomitant]
     Active Substance: ACETAMINOPHEN\HYDROCODONE BITARTRATE
  10. DEXTROSE. [Concomitant]
     Active Substance: DEXTROSE
  11. LIDOCAINE. [Concomitant]
     Active Substance: LIDOCAINE
  12. SODIUM CHLORIDE. [Concomitant]
     Active Substance: SODIUM CHLORIDE
  13. HUMAN NORMAL IMMUNOGLOBULIN; LIQUID [Suspect]
     Active Substance: HUMAN IMMUNOGLOBULIN G
     Indication: MYASTHENIA GRAVIS
     Dosage: 30 GRAM, Q2WEEKS
     Route: 042
     Dates: start: 20210421
  14. FAMOTIDINE. [Concomitant]
     Active Substance: FAMOTIDINE
  15. METHOTREXATE. [Concomitant]
     Active Substance: METHOTREXATE
  16. TYLENOL [Concomitant]
     Active Substance: ACETAMINOPHEN
  17. BENADRYL [Concomitant]
     Active Substance: DIPHENHYDRAMINE HYDROCHLORIDE
  18. MECLIZINE [Concomitant]
     Active Substance: MECLIZINE HYDROCHLORIDE
  19. MUPIROCIN. [Concomitant]
     Active Substance: MUPIROCIN
  20. FOLIC ACID. [Concomitant]
     Active Substance: FOLIC ACID
  21. DEPAKOTE ER [Concomitant]
     Active Substance: DIVALPROEX SODIUM
  22. BIOTIN [Concomitant]
     Active Substance: BIOTIN
  23. DIPHENHYDRAMINE. [Concomitant]
     Active Substance: DIPHENHYDRAMINE
  24. HEPARIN [Concomitant]
     Active Substance: HEPARIN SODIUM
  25. PROAIR HFA [Concomitant]
     Active Substance: ALBUTEROL SULFATE
  26. FIORICET [Concomitant]
     Active Substance: ACETAMINOPHEN\BUTALBITAL\CAFFEINE
  27. NEURONTIN [Concomitant]
     Active Substance: GABAPENTIN
  28. CLINDESSE [Concomitant]
     Active Substance: CLINDAMYCIN PHOSPHATE
  29. MESTINON [Concomitant]
     Active Substance: PYRIDOSTIGMINE BROMIDE
  30. EPINEPHRINE. [Concomitant]
     Active Substance: EPINEPHRINE
  31. PRAVASTATIN. [Concomitant]
     Active Substance: PRAVASTATIN
  32. CELLCEPT [Concomitant]
     Active Substance: MYCOPHENOLATE MOFETIL\MYCOPHENOLATE MOFETIL HYDROCHLORIDE
  33. PROMETHAZINE [Concomitant]
     Active Substance: PROMETHAZINE HYDROCHLORIDE
  34. TRAZODONE HYDROCHLORIDE. [Concomitant]
     Active Substance: TRAZODONE HYDROCHLORIDE
  35. CALCIUM [Concomitant]
     Active Substance: CALCIUM

REACTIONS (1)
  - Hospitalisation [Unknown]
